FAERS Safety Report 14176910 (Version 1)
Quarter: 2017Q4

REPORT INFORMATION
  Report Type: Spontaneous
  Country: US (occurrence: US)
  Receive Date: 20171110
  Receipt Date: 20171110
  Transmission Date: 20180321
  Serious: No
  Sender: FDA-Public Use
  Company Number: US-009507513-1710CAN013404

PATIENT
  Sex: Female

DRUGS (1)
  1. AVANZA [Suspect]
     Active Substance: MIRTAZAPINE
     Route: 048

REACTIONS (6)
  - Heart rate increased [Unknown]
  - Insomnia [Unknown]
  - Vertigo [Unknown]
  - Dizziness [Unknown]
  - Agitation [Unknown]
  - Wrong technique in product usage process [Unknown]
